FAERS Safety Report 12077754 (Version 5)
Quarter: 2018Q1

REPORT INFORMATION
  Report Type: Report from Study
  Country: CO (occurrence: CO)
  Receive Date: 20160215
  Receipt Date: 20180131
  Transmission Date: 20180508
  Serious: Yes (Hospitalization)
  Sender: FDA-Public Use
  Company Number: PHHY2015CO166790

PATIENT
  Sex: Male
  Weight: 26 kg

DRUGS (7)
  1. FOLIC ACID. [Concomitant]
     Active Substance: FOLIC ACID
     Indication: PRODUCT USED FOR UNKNOWN INDICATION
     Route: 065
  2. LORATADINE. [Concomitant]
     Active Substance: LORATADINE
     Indication: PRODUCT USED FOR UNKNOWN INDICATION
     Route: 065
  3. EXJADE [Suspect]
     Active Substance: DEFERASIROX
     Indication: SICKLE CELL ANAEMIA
     Dosage: 25 MG/KG, QD (500 MG TWICE A DAILY)
     Route: 048
     Dates: start: 20111229
  4. EXJADE [Suspect]
     Active Substance: DEFERASIROX
     Dosage: 25 MG/KG, QD (500 MG ON MONDAYS, TUESDAYS, THURSDAYS AND FRIDAYS)
     Route: 048
  5. EXJADE [Suspect]
     Active Substance: DEFERASIROX
     Dosage: 500 MG, (ONE TABLET EVERY OTHER DAY)
     Route: 048
  6. EXJADE [Suspect]
     Active Substance: DEFERASIROX
     Dosage: 45 MG/KG, QD (1000 MG ON SATURDAYS, SUNDAYS AND WEDNESDAYS)
     Route: 048
  7. HYDROXYUREA. [Concomitant]
     Active Substance: HYDROXYUREA
     Indication: SICKLE CELL ANAEMIA
     Dosage: 500 MG, QD
     Route: 048

REACTIONS (18)
  - Swelling [Unknown]
  - Vomiting [Unknown]
  - Oxygen saturation decreased [Unknown]
  - Spinal pain [Unknown]
  - Haemoglobin decreased [Unknown]
  - Serum ferritin increased [Unknown]
  - Cardiomegaly [Unknown]
  - Inappropriate schedule of drug administration [Unknown]
  - Pyrexia [Unknown]
  - Chest pain [Unknown]
  - Bone swelling [Unknown]
  - Headache [Unknown]
  - Abdominal pain [Unknown]
  - Abdominal pain upper [Unknown]
  - Pneumonitis [Unknown]
  - Cardiac disorder [Unknown]
  - Lung disorder [Unknown]
  - Incorrect dose administered [Unknown]
